FAERS Safety Report 6024258-0 (Version None)
Quarter: 2008Q4

REPORT INFORMATION
  Report Type: 
  Country: None (occurrence: None)
  Receive Date: 20081222
  Receipt Date: 20081101
  Transmission Date: 20090506
  Serious: No
  Sender: FDA-Public Use
  Company Number: SPV1-2008-02396

PATIENT
  Sex: Male
  Weight: 104.3 kg

DRUGS (4)
  1. VYVANSE [Suspect]
     Indication: ATTENTION DEFICIT/HYPERACTIVITY DISORDER
     Dosage: 1X/DAY;QD, ORAL
     Route: 048
     Dates: start: 20080601
  2. LIPITOR [Suspect]
     Indication: BLOOD CHOLESTEROL INCREASED
     Dosage: 1X/DAY:QD, ORAL
     Route: 048
     Dates: end: 20080101
  3. ZOLOFT [Concomitant]
  4. LEVOXYL [Concomitant]

REACTIONS (2)
  - INSOMNIA [None]
  - PAIN IN EXTREMITY [None]
